FAERS Safety Report 7897808-7 (Version None)
Quarter: 2011Q4

REPORT INFORMATION
  Report Type: 
  Country: None (occurrence: None)
  Receive Date: 20111107
  Receipt Date: 20111027
  Transmission Date: 20120403
  Serious: No
  Sender: FDA-Public Use
  Company Number: US-B.I. PHARMACEUTICALS,INC./RIDGEFIELD-2011-BP-25212BP

PATIENT
  Age: 57 Year
  Sex: Male

DRUGS (6)
  1. DILATAZEM [Concomitant]
     Indication: HYPERTENSION
  2. PRADAXA [Suspect]
     Indication: ATRIAL FIBRILLATION
     Dosage: 300 MG
     Route: 048
     Dates: start: 20110101
  3. CELEBREX [Concomitant]
     Indication: ARTHRITIS
  4. VICODIN [Concomitant]
     Indication: BACK PAIN
  5. METROPOROL [Concomitant]
     Indication: HYPERTENSION
  6. LEXAPRO [Concomitant]
     Indication: NERVOUSNESS

REACTIONS (1)
  - HYPERHIDROSIS [None]
